FAERS Safety Report 17990736 (Version 2)
Quarter: 2020Q3

REPORT INFORMATION
  Report Type: Report from Study
  Country: AR (occurrence: AR)
  Receive Date: 20200707
  Receipt Date: 20200713
  Transmission Date: 20201103
  Serious: Yes (Death, Hospitalization, Other)
  Sender: FDA-Public Use
  Company Number: NVSC2020AR189951

PATIENT
  Age: 72 Year
  Sex: Female

DRUGS (1)
  1. COSENTYX [Suspect]
     Active Substance: SECUKINUMAB
     Indication: PSORIASIS
     Dosage: 300 MG, QMO
     Route: 065
     Dates: start: 20180914, end: 2020

REACTIONS (14)
  - Cardiac disorder [Unknown]
  - Gastrointestinal disorder [Fatal]
  - Lower limb fracture [Unknown]
  - Headache [Unknown]
  - Abdominal infection [Fatal]
  - Cerebrovascular accident [Recovered/Resolved]
  - Gait disturbance [Unknown]
  - Pyrexia [Unknown]
  - Drug ineffective [Unknown]
  - Cardiomegaly [Unknown]
  - Musculoskeletal stiffness [Unknown]
  - Arterial occlusive disease [Unknown]
  - Feeling abnormal [Unknown]
  - Neck pain [Unknown]

NARRATIVE: CASE EVENT DATE: 201910
